FAERS Safety Report 4962576-5 (Version None)
Quarter: 2006Q1

REPORT INFORMATION
  Report Type: 
  Country: None (occurrence: None)
  Receive Date: 20060201
  Receipt Date: 20051025
  Transmission Date: 20060701
  Serious: No
  Sender: FDA-Public Use
  Company Number: 2005PV004154

PATIENT
  Age: 64 Year
  Sex: Male
  Weight: 146.9654 kg

DRUGS (17)
  1. BYETTA [Suspect]
     Indication: DIABETES MELLITUS NON-INSULIN-DEPENDENT
     Dosage: SEE IMAGE
     Route: 058
     Dates: start: 20050701, end: 20050901
  2. BYETTA [Suspect]
     Indication: DIABETES MELLITUS NON-INSULIN-DEPENDENT
     Dosage: SEE IMAGE
     Route: 058
     Dates: start: 20051019
  3. GLUCOPHAGE [Concomitant]
  4. GLUCOTROL XL [Concomitant]
  5. ZAROXOLYN [Concomitant]
  6. NOVALOG PEN [Concomitant]
  7. LANTUS [Concomitant]
  8. LASIX [Concomitant]
  9. ALLOPURINOL [Concomitant]
  10. POTASSIUM [Concomitant]
  11. LANOXIN [Concomitant]
  12. ZOLOFT [Concomitant]
  13. SLOMAG [Concomitant]
  14. ACIPHEX [Concomitant]
  15. AVAPRO [Concomitant]
  16. ASPIRIN [Concomitant]
  17. ADVAIR DISKUS 100/50 [Concomitant]

REACTIONS (7)
  - CANDIDIASIS [None]
  - DECREASED APPETITE [None]
  - DRUG INEFFECTIVE [None]
  - FEELING JITTERY [None]
  - IRRITABILITY [None]
  - LETHARGY [None]
  - PHARYNGOLARYNGEAL PAIN [None]
